FAERS Safety Report 8170197-9 (Version None)
Quarter: 2012Q1

REPORT INFORMATION
  Report Type: 
  Country: None (occurrence: None)
  Receive Date: 20120228
  Receipt Date: 20120217
  Transmission Date: 20120608
  Serious: Yes (Hospitalization)
  Sender: FDA-Public Use
  Company Number: IT-MPIJNJ-2012-01121

PATIENT

DRUGS (2)
  1. VELCADE [Suspect]
     Indication: MULTIPLE MYELOMA
     Dosage: 1.8 MG, UNK
     Route: 042
     Dates: start: 20110921, end: 20111228
  2. DEXAMETHASONE [Concomitant]
     Dosage: 10 MG, UNK
     Route: 048
     Dates: start: 20111228, end: 20120101

REACTIONS (3)
  - HYPERPYREXIA [None]
  - CONDITION AGGRAVATED [None]
  - CHRONIC OBSTRUCTIVE PULMONARY DISEASE [None]
